FAERS Safety Report 9279078 (Version 3)
Quarter: 2013Q3

REPORT INFORMATION
  Report Type: Report from Study
  Country: DE (occurrence: DE)
  Receive Date: 20130508
  Receipt Date: 20130913
  Transmission Date: 20140515
  Serious: Yes (Hospitalization, Other)
  Sender: FDA-Public Use
  Company Number: DE-BAYER-2013-055043

PATIENT
  Age: 49 Year
  Sex: Female
  Weight: 82 kg

DRUGS (3)
  1. BETAFERON [Suspect]
     Indication: MULTIPLE SCLEROSIS
     Dosage: 250 ?G/ML, QOD
     Dates: start: 2009, end: 201301
  2. BETAFERON [Suspect]
     Indication: MULTIPLE SCLEROSIS
     Dosage: UNK
     Dates: start: 20130326
  3. VOLTAREN [Suspect]
     Indication: PAIN IN EXTREMITY

REACTIONS (26)
  - Intestinal haemorrhage [None]
  - Joint swelling [None]
  - Alopecia [None]
  - Pyrexia [None]
  - Febrile infection [None]
  - Infectious colitis [None]
  - Gastrointestinal inflammation [None]
  - Arthritis reactive [None]
  - Musculoskeletal discomfort [Recovered/Resolved]
  - Tenosynovitis [None]
  - Oedema peripheral [Recovering/Resolving]
  - Pain in extremity [Recovering/Resolving]
  - Nodule [Recovering/Resolving]
  - Arthralgia [None]
  - Limb discomfort [None]
  - Back pain [None]
  - Musculoskeletal discomfort [None]
  - Night sweats [None]
  - Weight decreased [Recovered/Resolved]
  - Decreased appetite [Recovered/Resolved]
  - Rash [Recovered/Resolved]
  - Cough [Recovered/Resolved]
  - Local swelling [Recovered/Resolved]
  - Musculoskeletal pain [Recovered/Resolved]
  - Abnormal faeces [None]
  - Diarrhoea haemorrhagic [None]
